FAERS Safety Report 6243921-X (Version None)
Quarter: 2009Q2

REPORT INFORMATION
  Report Type: 
  Country: None (occurrence: None)
  Receive Date: 20090624
  Receipt Date: 20090615
  Transmission Date: 20091009
  Serious: Yes (Hospitalization)
  Sender: FDA-Public Use
  Company Number: JP-AMGEN-US317910

PATIENT
  Sex: Male
  Weight: 76 kg

DRUGS (15)
  1. ENBREL [Suspect]
     Indication: RHEUMATOID ARTHRITIS
     Route: 058
     Dates: start: 20061010, end: 20070406
  2. ENBREL [Suspect]
     Route: 058
     Dates: start: 20070821, end: 20071107
  3. ENBREL [Suspect]
     Route: 058
     Dates: start: 20071127, end: 20080605
  4. RHEUMATREX [Suspect]
     Indication: RHEUMATOID ARTHRITIS
     Route: 065
     Dates: start: 20060713, end: 20060816
  5. RHEUMATREX [Suspect]
     Route: 048
     Dates: start: 20060817, end: 20070406
  6. RHEUMATREX [Suspect]
     Route: 048
     Dates: start: 20070515, end: 20071107
  7. RHEUMATREX [Suspect]
     Route: 048
     Dates: start: 20071121, end: 20080605
  8. VOLTAREN [Concomitant]
     Indication: RHEUMATOID ARTHRITIS
     Route: 048
     Dates: start: 20060817, end: 20080605
  9. FOLIAMIN [Concomitant]
     Route: 048
     Dates: start: 20060817, end: 20070406
  10. FOLIAMIN [Concomitant]
     Route: 048
     Dates: start: 20070515, end: 20071107
  11. FOLIAMIN [Concomitant]
     Route: 048
     Dates: start: 20071121, end: 20080605
  12. BENET [Concomitant]
     Route: 048
     Dates: start: 20060817, end: 20080605
  13. PREDNISOLONE [Concomitant]
     Indication: RHEUMATOID ARTHRITIS
     Dosage: UNKNOWN
     Route: 048
     Dates: start: 20060817, end: 20080605
  14. GLAKAY [Concomitant]
     Route: 048
     Dates: start: 20060817, end: 20080605
  15. CYTOTEC [Concomitant]
     Route: 048
     Dates: start: 20060817, end: 20080605

REACTIONS (7)
  - CATARACT [None]
  - COMPUTERISED TOMOGRAM ABNORMAL [None]
  - DIVERTICULITIS [None]
  - LARGE INTESTINE PERFORATION [None]
  - OSTEONECROSIS [None]
  - PERITONITIS [None]
  - RETROPERITONEAL ABSCESS [None]
